FAERS Safety Report 20733084 (Version 2)
Quarter: 2022Q2

REPORT INFORMATION
  Report Type: Report from Study
  Country: FR (occurrence: FR)
  Receive Date: 20220421
  Receipt Date: 20220428
  Transmission Date: 20220721
  Serious: Yes (Hospitalization)
  Sender: FDA-Public Use
  Company Number: FR-BRISTOL-MYERS SQUIBB COMPANY-BMS-2022-033266

PATIENT
  Age: 54 Year
  Sex: Male
  Weight: 65 kg

DRUGS (10)
  1. NIVOLUMAB [Suspect]
     Active Substance: NIVOLUMAB
     Indication: Squamous cell carcinoma of head and neck
     Dosage: 360 MILLIGRAM
     Route: 065
     Dates: start: 20220131
  2. NIVOLUMAB [Suspect]
     Active Substance: NIVOLUMAB
     Dosage: 360 MILLIGRAM
     Route: 065
     Dates: start: 20220221
  3. NIVOLUMAB [Suspect]
     Active Substance: NIVOLUMAB
     Route: 065
     Dates: start: 20220117
  4. CISPLATIN [Suspect]
     Active Substance: CISPLATIN
     Indication: Squamous cell carcinoma of head and neck
     Dosage: 180 MG (100MG/M2)
     Route: 065
     Dates: start: 20220131, end: 20220221
  5. CISPLATIN [Suspect]
     Active Substance: CISPLATIN
     Dosage: 180 MG (100MG/M2)
     Route: 065
     Dates: start: 20220221
  6. NIVOLUMAB [Suspect]
     Active Substance: NIVOLUMAB
     Dosage: 360 MILLIGRAM
     Route: 065
     Dates: start: 20220221
  7. DOLIPRANE [Concomitant]
     Active Substance: ACETAMINOPHEN
     Indication: Product used for unknown indication
     Dosage: IF NEEDED
     Route: 048
  8. POLYETHYLENE GLYCOL 4000 [Concomitant]
     Active Substance: POLYETHYLENE GLYCOL 4000
     Indication: Product used for unknown indication
     Dosage: IF CONSTIPATION
     Route: 048
  9. PRIMPERAN COMPLEX [DIMETICONE;METOCLOPRAMIDE] [Concomitant]
     Indication: Product used for unknown indication
     Dosage: IF NAUSEA
     Route: 048
  10. IALUSET [Concomitant]
     Indication: Product used for unknown indication
     Dosage: 1 APPLICATION DAILY

REACTIONS (2)
  - Nausea [Unknown]
  - Dysphagia [Unknown]

NARRATIVE: CASE EVENT DATE: 20220307
